FAERS Safety Report 9030562 (Version 2)
Quarter: 2013Q1

REPORT INFORMATION
  Report Type: Spontaneous
  Country: US (occurrence: US)
  Receive Date: 20130122
  Receipt Date: 20130125
  Transmission Date: 20140127
  Serious: Yes (Other)
  Sender: FDA-Public Use
  Company Number: US-009507513-1301USA009732

PATIENT
  Sex: 0

DRUGS (4)
  1. FOSAMAX [Suspect]
     Indication: OSTEOPOROSIS
     Dosage: UNK
     Route: 048
  2. FOSAMAX [Suspect]
     Indication: OSTEOPENIA
  3. BONIVA [Suspect]
     Indication: OSTEOPOROSIS
     Dosage: UNK
  4. BONIVA [Suspect]
     Indication: OSTEOPENIA

REACTIONS (2)
  - Femur fracture [Unknown]
  - Low turnover osteopathy [Unknown]
